FAERS Safety Report 7043226-3 (Version None)
Quarter: 2010Q4

REPORT INFORMATION
  Report Type: 
  Country: None (occurrence: None)
  Receive Date: 20101013
  Receipt Date: 20100329
  Transmission Date: 20110411
  Serious: No
  Sender: FDA-Public Use
  Company Number: US-ASTRAZENECA-2010SE13798

PATIENT
  Sex: Female
  Weight: 77.1 kg

DRUGS (2)
  1. SYMBICORT [Suspect]
     Indication: ASTHMA
     Dosage: 2 PUFFS
     Route: 055
     Dates: start: 20100226
  2. SYMBICORT [Suspect]
     Indication: EMPHYSEMA
     Dosage: 2 PUFFS
     Route: 055
     Dates: start: 20100226

REACTIONS (3)
  - HEADACHE [None]
  - SINUS CONGESTION [None]
  - VISUAL ACUITY REDUCED [None]
